FAERS Safety Report 6318062-3 (Version None)
Quarter: 2009Q3

REPORT INFORMATION
  Report Type: 
  Country: None (occurrence: None)
  Receive Date: 20090821
  Receipt Date: 20090814
  Transmission Date: 20100115
  Serious: Yes (Life-Threatening, Hospitalization)
  Sender: FDA-Public Use
  Company Number: PL-AMGEN-UK357767

PATIENT
  Sex: Female

DRUGS (8)
  1. ROMIPLOSTIM [Suspect]
     Indication: IDIOPATHIC THROMBOCYTOPENIC PURPURA
     Route: 058
     Dates: start: 20090426
  2. ROMIPLOSTIM - STUDY PROCEDURE [Suspect]
  3. EXACYL [Concomitant]
     Route: 048
     Dates: start: 20090421, end: 20090510
  4. CYCLONAMINE [Concomitant]
     Route: 048
     Dates: start: 20090421, end: 20090510
  5. FERROUS SULFATE TAB [Concomitant]
     Route: 048
     Dates: start: 20090421, end: 20090614
  6. FOLIC ACID [Concomitant]
     Route: 048
     Dates: start: 20090421, end: 20090614
  7. TERTENSIF [Concomitant]
     Route: 048
     Dates: start: 20081020
  8. TRITACE [Concomitant]
     Route: 048
     Dates: start: 20081020

REACTIONS (1)
  - BLOOD SMEAR TEST ABNORMAL [None]
